FAERS Safety Report 8462048-X (Version None)
Quarter: 2012Q2

REPORT INFORMATION
  Report Type: 
  Country: None (occurrence: None)
  Receive Date: 20120625
  Receipt Date: 20120618
  Transmission Date: 20120825
  Serious: Yes (Hospitalization)
  Sender: FDA-Public Use
  Company Number: US-BAYER-2012-060818

PATIENT
  Age: 18 Year
  Sex: Female
  Weight: 90.249 kg

DRUGS (17)
  1. DOXYCYCLINE [Concomitant]
     Dosage: 100 MG, UNK
  2. BENZONATATE [Concomitant]
     Dosage: 200 MG, UNK
  3. DROSPIRENONE AND ETHINYL ESTRADIOL [Suspect]
  4. PREDNISONE TAB [Concomitant]
     Dosage: UNK
     Dates: start: 20110216
  5. OXYCODONE AND ACETAMINOPHEN [Concomitant]
  6. CEPHALEXIN [Concomitant]
     Dosage: 500 MG, UNK
  7. ATROVENT [Concomitant]
  8. VENTOLIN HFA [Concomitant]
     Indication: WHEEZING
     Dosage: 90 ?G, UNK
     Route: 045
  9. YAZ [Suspect]
     Indication: DYSFUNCTIONAL UTERINE BLEEDING
  10. ALBUTEROL [Concomitant]
  11. BENZACLIN [Concomitant]
     Dosage: 25 G, UNK
     Route: 061
  12. ZITHROMAX [Concomitant]
     Dosage: 250 MG, UNK
     Route: 048
  13. ELOCON [Concomitant]
     Dosage: 0.1 % , DAILY
     Route: 061
  14. HYDROCODONE W/HOMATROPINE [Concomitant]
  15. NUCYNTA [Concomitant]
     Dosage: 50 MG, UNK
  16. FLOVENT [Concomitant]
     Dosage: 44 ?G, UNK
     Route: 045
  17. TRI-SPRINTEC [Concomitant]

REACTIONS (1)
  - PULMONARY EMBOLISM [None]
